FAERS Safety Report 9186087 (Version 1)
Quarter: 2013Q1

REPORT INFORMATION
  Report Type: Spontaneous
  Country: US (occurrence: US)
  Receive Date: 20130325
  Receipt Date: 20130325
  Transmission Date: 20140127
  Serious: No
  Sender: FDA-Public Use
  Company Number: US-BAUSCH-2012BL003775

PATIENT
  Sex: Male

DRUGS (11)
  1. FLUNISOLIDE [Suspect]
     Indication: SINUS CONGESTION
     Dosage: DAILY DOSE: 1 SPRAY
     Route: 045
     Dates: start: 201201, end: 201205
  2. BENAZEPRIL HYDROCHLORIDE [Concomitant]
     Indication: HYPERTENSION
     Route: 048
     Dates: start: 2005
  3. ATORVASTATIN [Concomitant]
     Indication: BLOOD CHOLESTEROL INCREASED
     Route: 048
     Dates: start: 2004
  4. AMLODIPINE BESILATE [Concomitant]
     Indication: HYPERTENSION
     Route: 048
     Dates: start: 2010
  5. METFORMIN HYDROCHLORIDE [Concomitant]
     Indication: TYPE 2 DIABETES MELLITUS
     Route: 048
     Dates: start: 2004
  6. L-THYROXIN ^HENNING BERLIN^ [Concomitant]
     Indication: HYPOTHYROIDISM
     Route: 048
     Dates: start: 2010
  7. ASPIRINE [Concomitant]
     Route: 048
  8. VITAMIN D [Concomitant]
  9. GLUCOSAMINE WITH VITAMIN D [Concomitant]
  10. GREEN TEA [Concomitant]
  11. VITAMIN B [Concomitant]

REACTIONS (2)
  - Muscle spasms [Recovered/Resolved]
  - Pain in extremity [Recovered/Resolved]
